FAERS Safety Report 6967241-0 (Version None)
Quarter: 2010Q3

REPORT INFORMATION
  Report Type: 
  Country: None (occurrence: None)
  Receive Date: 20100907
  Receipt Date: 20100824
  Transmission Date: 20110219
  Serious: Yes (Hospitalization)
  Sender: FDA-Public Use
  Company Number: FR-ELI_LILLY_AND_COMPANY-FR201008007145

PATIENT
  Age: 75 Year
  Sex: Female

DRUGS (10)
  1. FORTEO [Suspect]
     Indication: OSTEOPOROSIS
     Dosage: 20 UG, DAILY (1/D)
     Dates: start: 20100708
  2. ZANIDIP [Concomitant]
     Dosage: 0.5 DSG/MORNING
  3. CANDESARTAN CILEXETIL [Concomitant]
     Dosage: 1 TABLET/ AT NIGHT
  4. VASTAREL [Concomitant]
     Dosage: 1 DSG MORNING AND NIGHT
  5. CALCIDOSE [Concomitant]
     Dosage: 1 DSG AT NIGHT
  6. FOLIC ACID [Concomitant]
     Dosage: 1 DSG MORNING AND NIGHT
  7. XANAX [Concomitant]
     Dosage: 1 DSG AT NIGHT
  8. OXYCONTIN [Concomitant]
     Dosage: 1 DSG AT NIGHT
  9. HEXAQUINE [Concomitant]
     Dosage: 3 D/F, 3/D
  10. OXYCODONE HCL [Concomitant]
     Dosage: 1 D/F, EVERY 4 HRS

REACTIONS (1)
  - LUNG INFECTION [None]
